FAERS Safety Report 24378744 (Version 1)
Quarter: 2024Q3

REPORT INFORMATION
  Report Type: Spontaneous
  Country: PT (occurrence: PT)
  Receive Date: 20240930
  Receipt Date: 20240930
  Transmission Date: 20241016
  Serious: Yes (Other)
  Sender: NOVARTIS
  Company Number: PT-002147023-NVSC2024PT190215

PATIENT
  Age: 68 Year
  Sex: Male

DRUGS (1)
  1. PLUVICTO [Suspect]
     Active Substance: LUTETIUM LU-177 VIPIVOTIDE TETRAXETAN
     Indication: Hormone-refractory prostate cancer
     Dosage: UNK
     Route: 065

REACTIONS (10)
  - Metastases to bone [Recovering/Resolving]
  - Renal impairment [Unknown]
  - Neutropenia [Unknown]
  - Creatinine renal clearance decreased [Unknown]
  - Left ventricular dysfunction [Unknown]
  - Cardiac valve disease [Unknown]
  - Dry mouth [Unknown]
  - Asthenia [Unknown]
  - Diarrhoea [Unknown]
  - Blood creatinine increased [Unknown]
